FAERS Safety Report 8793844 (Version 1)
Quarter: 2012Q4

REPORT INFORMATION
  Report Type: 
  Country: FR (occurrence: FR)
  Receive Date: 20120917
  Receipt Date: 20120917
  Transmission Date: 20130627
  Serious: Yes (Life-Threatening, Hospitalization)
  Sender: FDA-Public Use
  Company Number: FR-JNJFOC-20120905015

PATIENT
  Age: 78 Year
  Sex: Male

DRUGS (8)
  1. REMICADE [Suspect]
     Indication: CROHN^S DISEASE
     Route: 042
     Dates: start: 20120629
  2. REMICADE [Suspect]
     Indication: CROHN^S DISEASE
     Route: 042
     Dates: start: 200911
  3. NOVATREX (METHOTREXATE) [Suspect]
     Indication: CROHN^S DISEASE
     Dosage: 5mg in the morning and 5 mg in the evening every monday
     Route: 048
  4. COTAREG [Concomitant]
     Indication: HYPERTENSION
     Dosage: 160MG/12.5 MG, QAM
     Route: 048
  5. MYSOLINE [Concomitant]
     Indication: ESSENTIAL TREMOR
     Dosage: 250 MG QAM AND 250 QPM
     Route: 048
  6. PERMIXON [Concomitant]
     Dosage: 160 MG QAM AND 160 QPM
     Route: 048
  7. ENTOCORT [Concomitant]
     Indication: CROHN^S DISEASE
     Dosage: 3 MG QAM AND 3 MG QPM
     Route: 048
  8. SPECIAFOLDINE [Concomitant]
     Indication: ANAEMIA
     Route: 048

REACTIONS (2)
  - Cerebrovascular accident [Recovered/Resolved with Sequelae]
  - Arrhythmia [Unknown]
